FAERS Safety Report 13087380 (Version 1)
Quarter: 2017Q1

REPORT INFORMATION
  Report Type: Spontaneous
  Country: AU (occurrence: AU)
  Receive Date: 20170105
  Receipt Date: 20170105
  Transmission Date: 20170428
  Serious: Yes (Other)
  Sender: FDA-Public Use
  Company Number: AU-SUN PHARMACEUTICAL INDUSTRIES LTD-2016RR-130254

PATIENT
  Sex: Female

DRUGS (4)
  1. VALPROIC ACID. [Suspect]
     Active Substance: VALPROIC ACID
     Indication: FRONTAL LOBE EPILEPSY
     Dosage: 200 MG, BID
     Route: 065
  2. TOPAMAX [Suspect]
     Active Substance: TOPIRAMATE
     Indication: FRONTAL LOBE EPILEPSY
     Dosage: 50 MG, BID
     Route: 065
  3. TOPAMAX [Suspect]
     Active Substance: TOPIRAMATE
     Dosage: 100 MG, BID
     Route: 065
  4. VALPROIC ACID. [Suspect]
     Active Substance: VALPROIC ACID
     Dosage: 300 MG, BID
     Route: 065

REACTIONS (5)
  - Syncope [Recovered/Resolved]
  - Vitamin D decreased [Recovered/Resolved]
  - Vasoconstriction [Recovered/Resolved]
  - Epilepsy [Recovered/Resolved]
  - Hypercalcaemia [Recovered/Resolved]
